FAERS Safety Report 9082482 (Version 1)
Quarter: 2013Q1

REPORT INFORMATION
  Report Type: Report from Study
  Country: US (occurrence: US)
  Receive Date: 20130130
  Receipt Date: 20130130
  Transmission Date: 20140127
  Serious: No
  Sender: FDA-Public Use
  Company Number: US-ABBOTT-12P-163-0971235-00

PATIENT
  Sex: Female
  Weight: 36.32 kg

DRUGS (2)
  1. HUMIRA 40 MG/0.8 ML PEN [Suspect]
     Indication: CROHN^S DISEASE
     Dates: start: 2010, end: 201208
  2. HUMIRA 40 MG/0.8 ML PEN [Suspect]
     Dosage: 40MG EACH: 2 CONSECUSTIVE DAYS Q 4 WEEKS
     Dates: start: 201208

REACTIONS (3)
  - Drug administered at inappropriate site [Not Recovered/Not Resolved]
  - Injection site pain [Not Recovered/Not Resolved]
  - Crohn^s disease [Not Recovered/Not Resolved]
